FAERS Safety Report 4487368-5 (Version None)
Quarter: 2004Q4

REPORT INFORMATION
  Report Type: 
  Country: None (occurrence: None)
  Receive Date: 20041022
  Receipt Date: 20041013
  Transmission Date: 20050328
  Serious: Yes (Other)
  Sender: FDA-Public Use
  Company Number: CAN-2004-0000204

PATIENT
  Sex: 0

DRUGS (4)
  1. MS CONTIN [Suspect]
     Dosage: ORAL
     Route: 048
  2. MS CONTIN [Suspect]
     Dosage: ORAL
     Route: 048
  3. TRAZODONE HCL [Concomitant]
  4. CITALOPRAM [Concomitant]

REACTIONS (1)
  - DYSKINESIA [None]
